FAERS Safety Report 7237473-5 (Version None)
Quarter: 2011Q1

REPORT INFORMATION
  Report Type: 
  Country: None (occurrence: None)
  Receive Date: 20110121
  Receipt Date: 20110112
  Transmission Date: 20110831
  Serious: Yes (Hospitalization)
  Sender: FDA-Public Use
  Company Number: DE-SANOFI-AVENTIS-2009SA009326

PATIENT
  Age: 83 Year
  Sex: Male

DRUGS (8)
  1. ALLOPURINOL [Concomitant]
     Route: 048
     Dates: start: 19950601
  2. BLOPRESS [Concomitant]
     Indication: HYPERTENSION
     Route: 048
     Dates: start: 20090606
  3. CASODEX [Suspect]
     Indication: PROSTATE CANCER
     Route: 048
     Dates: start: 20090528, end: 20090626
  4. INSULIN [Concomitant]
     Indication: DIABETES MELLITUS
     Route: 058
     Dates: start: 19970301
  5. PENTAERYTHRITOL TETRANITRATE [Concomitant]
     Indication: HYPERTENSION
     Route: 048
     Dates: start: 19950601
  6. EPOETIN ALFA [Concomitant]
     Route: 058
     Dates: start: 20090824
  7. ELIGARD [Suspect]
     Indication: DIABETES MELLITUS
     Route: 058
     Dates: start: 20061220, end: 20090528
  8. GODAMED [Concomitant]
     Indication: PROPHYLAXIS
     Route: 048
     Dates: start: 19950601

REACTIONS (2)
  - MYOCARDIAL INFARCTION [None]
  - OEDEMA PERIPHERAL [None]
